FAERS Safety Report 19443496 (Version 1)
Quarter: 2021Q2

REPORT INFORMATION
  Report Type: Spontaneous
  Country: US (occurrence: US)
  Receive Date: 20210621
  Receipt Date: 20210621
  Transmission Date: 20210717
  Serious: No
  Sender: FDA-Public Use
  Company Number: US-BAYER-2021-161063

PATIENT
  Sex: Female

DRUGS (1)
  1. CLIMARA [Suspect]
     Active Substance: ESTRADIOL
     Dosage: 1 DF, OW
     Route: 062

REACTIONS (2)
  - Product dose omission issue [None]
  - Product adhesion issue [None]
